FAERS Safety Report 12389661 (Version 1)
Quarter: 2016Q2

REPORT INFORMATION
  Report Type: Spontaneous
  Country: US (occurrence: US)
  Receive Date: 20160520
  Receipt Date: 20160520
  Transmission Date: 20160815
  Serious: Yes (Other)
  Sender: FDA-Public Use
  Company Number: US-PFIZER INC-2016249997

PATIENT
  Age: 70 Year
  Sex: Female

DRUGS (1)
  1. CHANTIX [Suspect]
     Active Substance: VARENICLINE TARTRATE
     Indication: SMOKING CESSATION THERAPY
     Dosage: 1 MG, AS DIRECTED PER PACKAGE INSTRUCTIONS
     Route: 048

REACTIONS (4)
  - Ligament rupture [Unknown]
  - Foot fracture [Unknown]
  - Fracture [Unknown]
  - Cardiovascular disorder [Unknown]
